FAERS Safety Report 14579705 (Version 1)
Quarter: 2018Q1

REPORT INFORMATION
  Report Type: Report from Study
  Country: None (occurrence: US)
  Receive Date: 20180227
  Receipt Date: 20180227
  Transmission Date: 20180509
  Serious: Yes (Other)
  Sender: FDA-Public Use
  Company Number: US-ABBVIE-17K-163-1913786-00

PATIENT
  Sex: Female

DRUGS (4)
  1. HUMIRA [Suspect]
     Active Substance: ADALIMUMAB
     Dosage: DAY 15
     Route: 058
     Dates: start: 20170207, end: 20170207
  2. HUMIRA [Suspect]
     Active Substance: ADALIMUMAB
     Dosage: DAY 29
     Route: 058
     Dates: start: 20170212
  3. HUMIRA [Suspect]
     Active Substance: ADALIMUMAB
     Indication: CROHN^S DISEASE
     Dosage: DAY ONE
     Route: 058
     Dates: start: 20170123, end: 20170123
  4. BENADRYL [Concomitant]
     Active Substance: DIPHENHYDRAMINE HYDROCHLORIDE
     Indication: PRODUCT USED FOR UNKNOWN INDICATION

REACTIONS (21)
  - Weight decreased [Unknown]
  - Malaise [Recovering/Resolving]
  - Abdominal pain [Recovered/Resolved]
  - Abortion spontaneous [Unknown]
  - Headache [Not Recovered/Not Resolved]
  - Myalgia [Unknown]
  - Vomiting [Not Recovered/Not Resolved]
  - Injection site erythema [Recovered/Resolved]
  - Abdominal pain upper [Recovered/Resolved]
  - Nausea [Recovering/Resolving]
  - Foetal death [Unknown]
  - Decreased appetite [Not Recovered/Not Resolved]
  - Nasal discharge discolouration [Unknown]
  - Injection site pain [Unknown]
  - Injection site pruritus [Recovered/Resolved]
  - Fatigue [Not Recovered/Not Resolved]
  - Seasonal allergy [Unknown]
  - Pain in extremity [Unknown]
  - Exposure during pregnancy [Unknown]
  - Diarrhoea [Unknown]
  - Sinus headache [Unknown]

NARRATIVE: CASE EVENT DATE: 2017
